FAERS Safety Report 17201418 (Version 2)
Quarter: 2019Q4

REPORT INFORMATION
  Report Type: Spontaneous
  Country: IT (occurrence: IT)
  Receive Date: 20191226
  Receipt Date: 20191226
  Transmission Date: 20200122
  Serious: Yes (Other)
  Sender: FDA-Public Use
  Company Number: IT-ELI_LILLY_AND_COMPANY-IT201912011221

PATIENT
  Age: 52 Year
  Sex: Male

DRUGS (1)
  1. RAMUCIRUMAB [Suspect]
     Active Substance: RAMUCIRUMAB
     Indication: ADENOCARCINOMA GASTRIC
     Dosage: UNK
     Dates: start: 201611

REACTIONS (1)
  - Jugular vein thrombosis [Unknown]

NARRATIVE: CASE EVENT DATE: 201810
